FAERS Safety Report 7630438-0 (Version None)
Quarter: 2011Q3

REPORT INFORMATION
  Report Type: 
  Country: None (occurrence: None)
  Receive Date: 20110722
  Receipt Date: 20110713
  Transmission Date: 20111222
  Serious: Yes (Other)
  Sender: FDA-Public Use
  Company Number: FR-GLAXOSMITHKLINE-B0734034A

PATIENT
  Age: 91 Year
  Sex: Female

DRUGS (1)
  1. PAROXETINE HCL [Suspect]
     Route: 065

REACTIONS (2)
  - INAPPROPRIATE ANTIDIURETIC HORMONE SECRETION [None]
  - ALTERED STATE OF CONSCIOUSNESS [None]
